FAERS Safety Report 11831441 (Version 1)
Quarter: 2015Q4

REPORT INFORMATION
  Report Type: Spontaneous
  Country: CO (occurrence: CO)
  Receive Date: 20151214
  Receipt Date: 20151214
  Transmission Date: 20160305
  Serious: Yes (Life-Threatening)
  Sender: FDA-Public Use
  Company Number: CO-AMGEN-COLSP2015131746

PATIENT
  Age: 72 Year
  Sex: Male

DRUGS (1)
  1. ENBREL [Suspect]
     Active Substance: ETANERCEPT
     Indication: PSORIASIS
     Dosage: 50 MG, 2X/WEEK
     Route: 058
     Dates: start: 2013

REACTIONS (3)
  - Pulmonary mass [Unknown]
  - Tuberculin test positive [Unknown]
  - Leiomyoma [Unknown]

NARRATIVE: CASE EVENT DATE: 201412
